FAERS Safety Report 5291066-8 (Version None)
Quarter: 2007Q2

REPORT INFORMATION
  Report Type: 
  Country: None (occurrence: None)
  Receive Date: 20070409
  Receipt Date: 20070403
  Transmission Date: 20071010
  Serious: Yes (Life-Threatening)
  Sender: FDA-Public Use
  Company Number: 2007CG00563

PATIENT
  Age: 38 Year
  Sex: Female

DRUGS (4)
  1. ZOMIG [Suspect]
     Indication: HEADACHE
     Route: 048
     Dates: end: 20060213
  2. MAGNEVIST [Suspect]
     Indication: NUCLEAR MAGNETIC RESONANCE IMAGING
     Route: 042
     Dates: start: 20060213, end: 20060213
  3. XANAX [Concomitant]
  4. ORAL CONTRACEPTIVE [Concomitant]
     Route: 048

REACTIONS (3)
  - ANAPHYLACTIC SHOCK [None]
  - ANGIOEDEMA [None]
  - CIRCULATORY COLLAPSE [None]
